FAERS Safety Report 7130595-9 (Version None)
Quarter: 2010Q4

REPORT INFORMATION
  Report Type: 
  Country: None (occurrence: None)
  Receive Date: 20101201
  Receipt Date: 20101125
  Transmission Date: 20110411
  Serious: Yes (Other)
  Sender: FDA-Public Use
  Company Number: JP-SANOFI-AVENTIS-2010SA071608

PATIENT

DRUGS (3)
  1. AMARYL [Suspect]
     Route: 048
  2. ACTOS [Concomitant]
     Route: 048
  3. BASEN [Concomitant]
     Route: 048

REACTIONS (1)
  - INTERSTITIAL LUNG DISEASE [None]
